FAERS Safety Report 6254961-9 (Version None)
Quarter: 2009Q3

REPORT INFORMATION
  Report Type: 
  Country: None (occurrence: None)
  Receive Date: 20090702
  Receipt Date: 20090625
  Transmission Date: 20100115
  Serious: Yes (Life-Threatening, Hospitalization, Disabling, Other)
  Sender: FDA-Public Use
  Company Number: US-MERCK-0809USA00802

PATIENT
  Age: 53 Year
  Sex: Male
  Weight: 85 kg

DRUGS (21)
  1. JANUVIA [Suspect]
     Indication: TYPE 2 DIABETES MELLITUS
     Route: 048
     Dates: start: 20070713
  2. ALBUTEROL [Concomitant]
     Route: 065
  3. ARIMIDEX [Concomitant]
     Route: 065
  4. ASMANEX TWISTHALER [Concomitant]
     Route: 065
  5. AUGMENTIN [Concomitant]
     Route: 065
  6. COZAAR [Concomitant]
     Route: 065
  7. TOPROL-XL [Concomitant]
     Route: 065
  8. COUMADIN [Concomitant]
     Route: 065
  9. FUROSEMIDE [Concomitant]
     Route: 065
  10. METHIMAZOLE [Concomitant]
     Route: 065
  11. PRANDIN [Concomitant]
     Route: 065
  12. FORADIL [Concomitant]
     Route: 065
  13. MAGNESIUM OXIDE [Concomitant]
     Route: 065
  14. OMEGA-3 MARINE TRIGLYCERIDES [Concomitant]
     Route: 065
  15. UBIDECARENONE [Concomitant]
     Route: 065
  16. PREDNISONE [Concomitant]
     Route: 065
  17. AVANDIA [Concomitant]
     Route: 065
  18. NASONEX [Concomitant]
     Route: 065
  19. PROTONIX [Concomitant]
     Route: 065
  20. COLACE [Concomitant]
     Route: 065
  21. SINGULAIR [Suspect]
     Route: 048
     Dates: start: 20071001, end: 20071101

REACTIONS (14)
  - ADRENAL INSUFFICIENCY [None]
  - ADRENAL SUPPRESSION [None]
  - BUNDLE BRANCH BLOCK LEFT [None]
  - DEHYDRATION [None]
  - GASTROOESOPHAGEAL REFLUX DISEASE [None]
  - HAEMATOMA [None]
  - HYPOCALCAEMIA [None]
  - INGUINAL HERNIA [None]
  - PANCREATITIS [None]
  - PERITONEAL HAEMORRHAGE [None]
  - SHOCK [None]
  - SYSTEMIC INFLAMMATORY RESPONSE SYNDROME [None]
  - THROMBOCYTOPENIA [None]
  - UPPER RESPIRATORY TRACT INFECTION [None]
